FAERS Safety Report 12668096 (Version 1)
Quarter: 2016Q3

REPORT INFORMATION
  Report Type: Spontaneous
  Country: JP (occurrence: JP)
  Receive Date: 20160819
  Receipt Date: 20160819
  Transmission Date: 20161109
  Serious: Yes (Disabling, Other)
  Sender: FDA-Public Use
  Company Number: JP-PRESTIUM-2016RN000361

PATIENT

DRUGS (2)
  1. PROPOFOL. [Concomitant]
     Active Substance: PROPOFOL
  2. ZOVIRAX [Suspect]
     Active Substance: ACYCLOVIR
     Indication: ENCEPHALITIS VIRAL
     Dosage: UNK
     Route: 048

REACTIONS (4)
  - Maximal voluntary ventilation decreased [Recovering/Resolving]
  - Paralysis [Recovering/Resolving]
  - Intensive care unit acquired weakness [Recovering/Resolving]
  - Sensory disturbance [Not Recovered/Not Resolved]
